FAERS Safety Report 7882802 (Version 2)
Quarter: 2013Q1

REPORT INFORMATION
  Report Type: Spontaneous
  Country: GB (occurrence: None)
  Receive Date: 20110302
  Receipt Date: 20130122
  Transmission Date: 20140127
  Serious: Yes (Hospitalization, Disabling)
  Sender: FDA-Public Use
  Company Number: 2011AP000274

PATIENT
  Age: 75 Year
  Sex: Male

DRUGS (2)
  1. LEVAQUIN [Suspect]
     Indication: BIOPSY
     Dates: start: 20101123, end: 20101223
  2. CIPROFLOXACIN [Suspect]
     Indication: BIOPSY
     Dates: start: 20101127, end: 20101223

REACTIONS (2)
  - Tendonitis [None]
  - Tendon rupture [None]
